FAERS Safety Report 4437126-2 (Version None)
Quarter: 2004Q3

REPORT INFORMATION
  Report Type: 
  Country: None (occurrence: None)
  Receive Date: 20040726
  Receipt Date: 20040322
  Transmission Date: 20050211
  Serious: No
  Sender: FDA-Public Use
  Company Number: USA040362846

PATIENT
  Age: 55 Year
  Sex: Female
  Weight: 41 kg

DRUGS (1)
  1. FORTEO [Suspect]
     Indication: OSTEOPOROSIS
     Dates: start: 20040315

REACTIONS (12)
  - ANOREXIA [None]
  - ASTHENIA [None]
  - DEPRESSED MOOD [None]
  - FLATULENCE [None]
  - HEART RATE INCREASED [None]
  - INJECTION SITE HAEMORRHAGE [None]
  - INSOMNIA [None]
  - MOOD SWINGS [None]
  - MUSCLE CRAMP [None]
  - PAIN [None]
  - PAIN IN EXTREMITY [None]
  - PALPITATIONS [None]
